FAERS Safety Report 11046498 (Version 1)
Quarter: 2015Q2

REPORT INFORMATION
  Report Type: Spontaneous
  Country: US (occurrence: US)
  Receive Date: 20150420
  Receipt Date: 20150420
  Transmission Date: 20150821
  Serious: No
  Sender: FDA-Public Use
  Company Number: US-TEVA-482081USA

PATIENT

DRUGS (2)
  1. NICOTINIC ACID [Suspect]
     Active Substance: NIACIN
  2. NICOTINIC ACID [Suspect]
     Active Substance: NIACIN

REACTIONS (2)
  - High density lipoprotein abnormal [Unknown]
  - Drug ineffective [Unknown]
